FAERS Safety Report 25289771 (Version 1)
Quarter: 2025Q2

REPORT INFORMATION
  Report Type: Report from Study
  Country: US (occurrence: US)
  Receive Date: 20250509
  Receipt Date: 20250509
  Transmission Date: 20250716
  Serious: Yes (Death)
  Sender: ALNYLAM PHARMACEUTICALS
  Company Number: US-ALNYLAM PHARMACEUTICALS, INC.-ALN-2025-003152

PATIENT

DRUGS (2)
  1. AMVUTTRA [Suspect]
     Active Substance: VUTRISIRAN
     Indication: Acquired ATTR amyloidosis
     Route: 065
  2. VYNDAMAX [Concomitant]
     Active Substance: TAFAMIDIS
     Indication: Product used for unknown indication
     Route: 065

REACTIONS (1)
  - Cardiac arrest [Fatal]
